FAERS Safety Report 19904879 (Version 1)
Quarter: 2021Q3

REPORT INFORMATION
  Report Type: Spontaneous
  Country: NL (occurrence: NL)
  Receive Date: 20210930
  Receipt Date: 20210930
  Transmission Date: 20211014
  Serious: Yes (Other)
  Sender: FDA-Public Use
  Company Number: NL-ABBVIE-21K-114-4099004-00

PATIENT
  Sex: Female
  Weight: 66 kg

DRUGS (4)
  1. MESALAZINE ZETPIL [Concomitant]
     Indication: PRODUCT USED FOR UNKNOWN INDICATION
     Dosage: ZETPIL, 1 G (GRAM)
     Route: 065
  2. RINVOQ [Suspect]
     Active Substance: UPADACITINIB
     Indication: AXIAL SPONDYLOARTHRITIS
     Dosage: 1 X PER DAG 1 STUK
     Route: 048
     Dates: start: 20210817, end: 20210826
  3. OXYCODON [Concomitant]
     Active Substance: OXYCODONE
     Indication: PRODUCT USED FOR UNKNOWN INDICATION
     Dosage: CAPSULE, 5 MG (MILLIGRAM)
     Route: 065
  4. PREDNISONE. [Concomitant]
     Active Substance: PREDNISONE
     Indication: PRODUCT USED FOR UNKNOWN INDICATION
     Dosage: OOGDRUPPELS 10MG/ML 4DD1 DRUPPEL
     Route: 065

REACTIONS (1)
  - Colitis [Recovering/Resolving]
